FAERS Safety Report 25308644 (Version 1)
Quarter: 2025Q2

REPORT INFORMATION
  Report Type: Spontaneous
  Country: US (occurrence: US)
  Receive Date: 20250513
  Receipt Date: 20250513
  Transmission Date: 20250717
  Serious: No
  Sender: SANOFI AVENTIS
  Company Number: US-SA-2025SA134441

PATIENT
  Age: 12 Year
  Sex: Male

DRUGS (2)
  1. ALPROLIX [Suspect]
     Active Substance: EFTRENONACOG ALFA
     Indication: Factor IX deficiency
     Dosage: 2000 U, QW
     Route: 042
     Dates: start: 201803
  2. ALPROLIX [Suspect]
     Active Substance: EFTRENONACOG ALFA
     Indication: Factor IX deficiency
     Dosage: 2000 U, QW
     Route: 042
     Dates: start: 201803

REACTIONS (2)
  - Epistaxis [Recovered/Resolved]
  - Nasal dryness [Unknown]

NARRATIVE: CASE EVENT DATE: 20250429
